FAERS Safety Report 9287650 (Version 2)
Quarter: 2013Q2

REPORT INFORMATION
  Report Type: Report from Study
  Country: US (occurrence: US)
  Receive Date: 20130514
  Receipt Date: 20130524
  Transmission Date: 20140414
  Serious: Yes (Other)
  Sender: FDA-Public Use
  Company Number: PHEH2013US010236

PATIENT
  Age: 48 Year
  Sex: Male

DRUGS (1)
  1. GILENYA [Suspect]
     Indication: RELAPSING-REMITTING MULTIPLE SCLEROSIS
     Route: 048
     Dates: start: 201011

REACTIONS (6)
  - Venous insufficiency [Recovering/Resolving]
  - Venous injury [Unknown]
  - Optic neuritis [Unknown]
  - Blindness transient [Recovering/Resolving]
  - Gait disturbance [Recovering/Resolving]
  - Asthenia [Recovering/Resolving]
